FAERS Safety Report 15989586 (Version 2)
Quarter: 2019Q3

REPORT INFORMATION
  Report Type: Spontaneous
  Country: US (occurrence: US)
  Receive Date: 20190221
  Receipt Date: 20190701
  Transmission Date: 20191004
  Serious: No
  Sender: FDA-Public Use
  Company Number: US-PFIZER INC-2019076673

PATIENT
  Age: 68 Year
  Sex: Female
  Weight: 95.25 kg

DRUGS (4)
  1. NEURONTIN [Suspect]
     Active Substance: GABAPENTIN
     Dosage: 2 DF, 3X/DAY(2 CAPSULES IN THE MORNING, NOON, AND AT NIGHT)
  2. GABAPENTIN. [Suspect]
     Active Substance: GABAPENTIN
     Dosage: 2 DF, 3X/DAY (2 CAPSULES IN THE MORNING, NOON, AND AT NIGHT)
     Dates: start: 2015
  3. GABAPENTIN. [Suspect]
     Active Substance: GABAPENTIN
     Dosage: 600 MG, 3X/DAY (INCREASED WITH ANOTHER 600MG, A TOTAL OF 1800MG A DAY)
  4. NEURONTIN [Suspect]
     Active Substance: GABAPENTIN
     Dosage: 600 MG, 3X/DAY (INCREASED WITH ANOTHER 600MG, A TOTAL OF 1800MG A DAY)

REACTIONS (7)
  - Headache [Recovering/Resolving]
  - Bradyphrenia [Recovering/Resolving]
  - Herpes zoster [Recovering/Resolving]
  - Eye pain [Recovering/Resolving]
  - Post herpetic neuralgia [Recovering/Resolving]
  - Feeling abnormal [Recovering/Resolving]
  - Pain in jaw [Recovering/Resolving]

NARRATIVE: CASE EVENT DATE: 201811
